FAERS Safety Report 8613328-6 (Version None)
Quarter: 2012Q3

REPORT INFORMATION
  Report Type: 
  Country: None (occurrence: None)
  Receive Date: 20120822
  Receipt Date: 20120806
  Transmission Date: 20120928
  Serious: Yes (Hospitalization, Other)
  Sender: FDA-Public Use
  Company Number: US-009507513-1202USA00032

PATIENT

DRUGS (4)
  1. FOSAMAX [Suspect]
     Indication: PROPHYLAXIS
     Dosage: UNK
     Route: 048
     Dates: start: 19950101, end: 20031001
  2. COUMADIN [Concomitant]
     Indication: THROMBOSIS PROPHYLAXIS
     Dosage: 5 MG, QD
     Dates: start: 19940101
  3. FOSAMAX [Suspect]
     Indication: OSTEOPOROSIS PROPHYLAXIS
     Dosage: 70 MG, QW
     Route: 048
     Dates: start: 20031221
  4. PROCARDIA [Concomitant]
     Indication: CARDIAC DISORDER
     Dosage: 30 MG, UNK
     Dates: start: 19900101

REACTIONS (8)
  - FEMUR FRACTURE [None]
  - MUSCLE STRAIN [None]
  - COLON CANCER [None]
  - DEVICE FAILURE [None]
  - MUSCULOSKELETAL DISCOMFORT [None]
  - FOOT FRACTURE [None]
  - FRACTURE DELAYED UNION [None]
  - ADVERSE EVENT [None]
